FAERS Safety Report 25760077 (Version 1)
Quarter: 2025Q3

REPORT INFORMATION
  Report Type: Spontaneous
  Country: US (occurrence: US)
  Receive Date: 20250904
  Receipt Date: 20250904
  Transmission Date: 20251020
  Serious: No
  Sender: CHIESI
  Company Number: US-CHIESI-2024CHF07494

PATIENT

DRUGS (1)
  1. FERRIPROX [Suspect]
     Active Substance: DEFERIPRONE
     Indication: Product used for unknown indication
     Dosage: UNK, TID
     Route: 065

REACTIONS (1)
  - Product use complaint [Unknown]
